FAERS Safety Report 5606503-6 (Version None)
Quarter: 2008Q1

REPORT INFORMATION
  Report Type: 
  Country: None (occurrence: None)
  Receive Date: 20080129
  Receipt Date: 20080122
  Transmission Date: 20080703
  Serious: Yes (Other)
  Sender: FDA-Public Use
  Company Number: A0704617A

PATIENT
  Age: 23 Year
  Sex: Male

DRUGS (6)
  1. LAMICTAL [Suspect]
     Indication: ANXIETY
     Dosage: 50MG PER DAY
     Route: 048
     Dates: start: 20071201
  2. XANAX [Concomitant]
  3. AMBIEN [Concomitant]
  4. LUNESTA [Concomitant]
  5. SEROQUEL [Concomitant]
  6. ABILIFY [Concomitant]

REACTIONS (6)
  - ADVERSE EVENT [None]
  - ANXIETY [None]
  - INSOMNIA [None]
  - IRRITABILITY [None]
  - MENTAL IMPAIRMENT [None]
  - MOOD SWINGS [None]
